FAERS Safety Report 21624528 (Version 1)
Quarter: 2022Q4

REPORT INFORMATION
  Report Type: Spontaneous
  Country: AT (occurrence: AT)
  Receive Date: 20221121
  Receipt Date: 20221121
  Transmission Date: 20230113
  Serious: Yes (Hospitalization)
  Sender: FDA-Public Use
  Company Number: AT-ALLERGAN-2236466US

PATIENT
  Age: 5 Year
  Sex: Male

DRUGS (2)
  1. CYCLOPENTOLATE [Suspect]
     Active Substance: CYCLOPENTOLATE
     Indication: Dacryostenosis acquired
     Dosage: INTO BOTH EYES
     Route: 047
  2. GENTAMICIN [Concomitant]
     Active Substance: GENTAMICIN
     Indication: Conjunctivitis

REACTIONS (1)
  - Hypersensitivity [Recovered/Resolved]
